FAERS Safety Report 18576862 (Version 1)
Quarter: 2020Q4

REPORT INFORMATION
  Report Type: Spontaneous
  Country: FR (occurrence: FR)
  Receive Date: 20201204
  Receipt Date: 20201204
  Transmission Date: 20210114
  Serious: Yes (Hospitalization)
  Sender: FDA-Public Use
  Company Number: FR-PFIZER INC-2020472218

PATIENT
  Age: 72 Year
  Sex: Male
  Weight: 72 kg

DRUGS (3)
  1. FLUOROURACILE TEVA [Suspect]
     Active Substance: FLUOROURACIL
     Indication: ADENOCARCINOMA OF COLON
     Dosage: 760 MG BOLUS + 1140 MG DIFFUSER
     Route: 040
     Dates: start: 20201112, end: 20201112
  2. ZIRABEV [Suspect]
     Active Substance: BEVACIZUMAB-BVZR
     Indication: ADENOCARCINOMA OF COLON
     Dosage: 380 MG, SINGLE
     Route: 041
     Dates: start: 20201112, end: 20201112
  3. OXALIPLATINE KABI [Suspect]
     Active Substance: OXALIPLATIN
     Indication: ADENOCARCINOMA OF COLON
     Dosage: 161.5 MG, SINGLE
     Route: 041
     Dates: start: 20201112, end: 20201112

REACTIONS (6)
  - Hypothermia [Recovered/Resolved]
  - Haematuria [Recovered/Resolved]
  - Hypertension [Recovered/Resolved]
  - Erythema [Recovered/Resolved]
  - Pruritus [Recovered/Resolved]
  - Back pain [Recovered/Resolved]

NARRATIVE: CASE EVENT DATE: 20201112
